FAERS Safety Report 5298861-X (Version None)
Quarter: 2007Q2

REPORT INFORMATION
  Report Type: 
  Country: None (occurrence: None)
  Receive Date: 20070410
  Receipt Date: 20070328
  Transmission Date: 20071010
  Serious: Yes (Other)
  Sender: FDA-Public Use
  Company Number: CHPA2006US07715

PATIENT
  Age: 57 Year
  Sex: Female
  Weight: 99.3 kg

DRUGS (8)
  1. NICOTINE [Suspect]
     Indication: SMOKING CESSATION THERAPY
     Dosage: 21 MG, QD, TRANSDERMAL
     Route: 062
     Dates: start: 20060726
  2. CONTROL PLP (NCH) [Suspect]
     Dosage: SEE IMAGE
     Route: 062
     Dates: start: 20060918, end: 20060918
  3. CONTROL PLP (NCH) [Suspect]
     Dosage: SEE IMAGE
     Route: 062
     Dates: start: 20060910
  4. NICOTINE [Suspect]
     Indication: SMOKING CESSATION THERAPY
     Dosage: 7 MG, TRANSDERMAL
     Route: 062
  5. TEMAZEPAM ^WYETH^ (TEMAZEPAM) [Concomitant]
  6. SEROQUEL [Concomitant]
  7. TRILEPTAL [Concomitant]
  8. TOPAMAX [Concomitant]

REACTIONS (33)
  - ABNORMAL DREAMS [None]
  - ANGER [None]
  - ANGINA PECTORIS [None]
  - ANXIETY [None]
  - BLOOD MAGNESIUM [None]
  - CONDITION AGGRAVATED [None]
  - COUGH [None]
  - CRYING [None]
  - DEPRESSION [None]
  - DISSOCIATION [None]
  - DIZZINESS [None]
  - DRUG INEFFECTIVE [None]
  - DYSPEPSIA [None]
  - DYSPNOEA [None]
  - FATIGUE [None]
  - HALLUCINATION [None]
  - HEADACHE [None]
  - HOMICIDAL IDEATION [None]
  - HYPOAESTHESIA [None]
  - INTERVERTEBRAL DISC INJURY [None]
  - INTERVERTEBRAL DISC PROTRUSION [None]
  - IRRITABILITY [None]
  - NAUSEA [None]
  - NICOTINE DEPENDENCE [None]
  - PAIN IN EXTREMITY [None]
  - PYREXIA [None]
  - RASH ERYTHEMATOUS [None]
  - RASH PAPULAR [None]
  - SLEEP DISORDER [None]
  - STRESS [None]
  - TREATMENT NONCOMPLIANCE [None]
  - TREMOR [None]
  - WRONG TECHNIQUE IN DRUG USAGE PROCESS [None]
